FAERS Safety Report 14014695 (Version 1)
Quarter: 2017Q3

REPORT INFORMATION
  Report Type: Spontaneous
  Country: US (occurrence: US)
  Receive Date: 20170927
  Receipt Date: 20170927
  Transmission Date: 20171128
  Serious: No
  Sender: FDA-Public Use
  Company Number: US-PFIZER INC-2017413780

PATIENT
  Age: 78 Year
  Sex: Female
  Weight: 67.12 kg

DRUGS (1)
  1. IBRANCE [Suspect]
     Active Substance: PALBOCICLIB
     Indication: BREAST CANCER METASTATIC
     Dosage: UNK, CYCLIC (DAYS 1-21 Q28 DAYS)
     Route: 048

REACTIONS (6)
  - Lacrimation increased [Unknown]
  - Cough [Unknown]
  - Alopecia [Unknown]
  - Pruritus [Unknown]
  - Dry skin [Unknown]
  - Eye pruritus [Unknown]
